FAERS Safety Report 5412072-6 (Version None)
Quarter: 2007Q3

REPORT INFORMATION
  Report Type: 
  Country: None (occurrence: None)
  Receive Date: 20070713
  Receipt Date: 20070327
  Transmission Date: 20080115
  Serious: No
  Sender: FDA-Public Use
  Company Number: 2007SP001091

PATIENT
  Age: 69 Year
  Sex: Male
  Weight: 77.1115 kg

DRUGS (4)
  1. LUNESTA [Suspect]
     Indication: INSOMNIA
     Dosage: 3 MG; PRN; ORAL
     Route: 048
     Dates: start: 20070301
  2. WARFARIN SODIUM [Concomitant]
  3. ANTIHYPERTENSIVES [Concomitant]
  4. XANAX [Concomitant]

REACTIONS (1)
  - MIDDLE INSOMNIA [None]
